FAERS Safety Report 11944537 (Version 1)
Quarter: 2016Q1

REPORT INFORMATION
  Report Type: Spontaneous
  Country: FR (occurrence: FR)
  Receive Date: 20160125
  Receipt Date: 20160125
  Transmission Date: 20160526
  Serious: Yes (Other)
  Sender: FDA-Public Use
  Company Number: PHHY2015FR135232

PATIENT
  Age: 60 Year
  Sex: Male

DRUGS (3)
  1. TASIGNA [Suspect]
     Active Substance: NILOTINIB
     Indication: CHRONIC MYELOID LEUKAEMIA
     Dosage: 800 MG, QD
     Route: 048
     Dates: start: 20141018, end: 20151022
  2. KARDEGIC [Concomitant]
     Active Substance: ASPIRIN LYSINE
     Indication: MYOCARDIAL INFARCTION
     Route: 065
  3. SIMVASTATIN. [Concomitant]
     Active Substance: SIMVASTATIN
     Indication: HYPERCHOLESTEROLAEMIA
     Dosage: UNK
     Route: 065

REACTIONS (5)
  - Arteriosclerosis [Unknown]
  - Peripheral arterial occlusive disease [Not Recovered/Not Resolved]
  - Intermittent claudication [Recovering/Resolving]
  - Pain [Unknown]
  - Angiopathy [Unknown]

NARRATIVE: CASE EVENT DATE: 20150606
